FAERS Safety Report 22172946 (Version 2)
Quarter: 2023Q4

REPORT INFORMATION
  Report Type: Spontaneous
  Country: US (occurrence: US)
  Receive Date: 20230404
  Receipt Date: 20231115
  Transmission Date: 20240110
  Serious: No
  Sender: FDA-Public Use
  Company Number: US-PFIZER INC-PV202300062000

PATIENT
  Age: 71 Year
  Sex: Female

DRUGS (1)
  1. IBRANCE [Suspect]
     Active Substance: PALBOCICLIB
     Dosage: 125 MG ORAL DAILY FOR 21 DAYS, THEN OFF FOR 7 DAYS

REACTIONS (3)
  - Malaise [Unknown]
  - Cough [Unknown]
  - Sneezing [Unknown]
